FAERS Safety Report 4988967-4 (Version None)
Quarter: 2006Q1

REPORT INFORMATION
  Report Type: 
  Country: None (occurrence: None)
  Receive Date: 20060314
  Receipt Date: 20051206
  Transmission Date: 20060701
  Serious: Yes (Other)
  Sender: FDA-Public Use
  Company Number: 200513589BCC

PATIENT
  Age: 45 Year
  Sex: Male
  Weight: 88.4514 kg

DRUGS (2)
  1. ALEVE [Suspect]
     Indication: BACK PAIN
     Dosage: 220 MG, ONCE, ORAL
     Route: 048
     Dates: start: 20050816
  2. ALEVE [Suspect]
     Indication: MYALGIA
     Dosage: 220 MG, ONCE, ORAL
     Route: 048
     Dates: start: 20050816

REACTIONS (3)
  - HYPERSENSITIVITY [None]
  - RASH [None]
  - SKIN EXFOLIATION [None]
